FAERS Safety Report 5924422-2 (Version None)
Quarter: 2008Q4

REPORT INFORMATION
  Report Type: 
  Country: None (occurrence: None)
  Receive Date: 20081020
  Receipt Date: 20081016
  Transmission Date: 20090506
  Serious: Yes (Other)
  Sender: FDA-Public Use
  Company Number: GB-WYE-G02129708

PATIENT
  Sex: Female
  Weight: 60 kg

DRUGS (10)
  1. RAPAMUNE [Suspect]
     Indication: SECONDARY IMMUNODEFICIENCY
     Route: 048
     Dates: start: 20080808, end: 20081012
  2. RAPAMUNE [Suspect]
     Route: 048
     Dates: start: 20081013
  3. PREDNISOLONE [Concomitant]
     Indication: IMMUNOSUPPRESSION
     Route: 048
     Dates: start: 20080501
  4. LANSOPRAZOLE [Concomitant]
     Indication: PROPHYLAXIS AGAINST GASTROINTESTINAL ULCER
     Route: 048
     Dates: start: 20080501
  5. SODIUM BICARBONATE [Concomitant]
     Route: 048
     Dates: start: 20080601, end: 20080901
  6. ASPIRIN [Concomitant]
     Indication: CARDIOVASCULAR EVENT PROPHYLAXIS
     Route: 048
     Dates: start: 20080501
  7. ALFACALCIDOL [Concomitant]
     Route: 048
     Dates: start: 20080501
  8. CO-TRIMOXAZOLE [Concomitant]
     Route: 048
     Dates: start: 20080501
  9. MYCOPHENOLATE MOFETIL [Concomitant]
     Route: 048
     Dates: start: 20080501, end: 20080801
  10. ARANESP [Concomitant]
     Indication: ANAEMIA
     Route: 058
     Dates: start: 20080601

REACTIONS (4)
  - ACIDOSIS [None]
  - BLOOD POTASSIUM INCREASED [None]
  - BLOOD PRESSURE INCREASED [None]
  - PROTEINURIA [None]
